FAERS Safety Report 19836382 (Version 1)
Quarter: 2021Q3

REPORT INFORMATION
  Report Type: Spontaneous
  Country: US (occurrence: US)
  Receive Date: 20210915
  Receipt Date: 20210915
  Transmission Date: 20211014
  Serious: No
  Sender: FDA-Public Use
  Company Number: US-BIOHAVEN PHARMACEUTICALS-2021BHV00921

PATIENT
  Sex: Female
  Weight: 65.76 kg

DRUGS (4)
  1. NURTEC ODT [Suspect]
     Active Substance: RIMEGEPANT SULFATE
     Dosage: 75 MG, EVERY 48 HOURS (EVERY OTHER DAY)
     Route: 060
     Dates: start: 20210520
  2. FYAVOLV [Concomitant]
     Active Substance: ETHINYL ESTRADIOL\NORETHINDRONE ACETATE
     Dosage: ^1/005^ 1X/DAY
  3. NURTEC ODT [Suspect]
     Active Substance: RIMEGEPANT SULFATE
     Indication: MIGRAINE
     Dosage: UNK
     Route: 060
     Dates: end: 20210519
  4. CALCITONIN [Concomitant]
     Active Substance: CALCITONIN
     Dosage: 1 DOSAGE UNITS (SNORT), 1X/DAY

REACTIONS (9)
  - Therapeutic product effect incomplete [Not Recovered/Not Resolved]
  - Migraine [Not Recovered/Not Resolved]
  - Dysgeusia [Not Recovered/Not Resolved]
  - Nausea [Not Recovered/Not Resolved]
  - Feeling abnormal [Not Recovered/Not Resolved]
  - Parosmia [Not Recovered/Not Resolved]
  - Disease prodromal stage [Not Recovered/Not Resolved]
  - Malaise [Not Recovered/Not Resolved]
  - Headache [Not Recovered/Not Resolved]

NARRATIVE: CASE EVENT DATE: 2020
